FAERS Safety Report 8164075-9 (Version None)
Quarter: 2012Q1

REPORT INFORMATION
  Report Type: 
  Country: None (occurrence: None)
  Receive Date: 20120224
  Receipt Date: 20120216
  Transmission Date: 20120608
  Serious: Yes (Other)
  Sender: FDA-Public Use
  Company Number: GB-B.I. PHARMACEUTICALS,INC./RIDGEFIELD-2012-BP-03049BP

PATIENT
  Sex: Male
  Weight: 0.622 kg

DRUGS (5)
  1. ISENTRESS [Concomitant]
     Indication: MATERNAL EXPOSURE DURING PREGNANCY
     Dosage: 800 MG
     Route: 064
     Dates: start: 20120105
  2. NORVIR [Concomitant]
     Indication: MATERNAL EXPOSURE DURING PREGNANCY
     Dosage: 100 MG
     Route: 064
     Dates: start: 20110826
  3. VIRAMUNE [Suspect]
     Indication: MATERNAL EXPOSURE DURING PREGNANCY
     Route: 064
     Dates: start: 20120105
  4. TRUVADA [Concomitant]
     Indication: MATERNAL EXPOSURE DURING PREGNANCY
     Route: 064
     Dates: start: 20110826
  5. PREZISTA [Concomitant]
     Indication: MATERNAL EXPOSURE DURING PREGNANCY
     Dosage: 800 MG
     Route: 064
     Dates: start: 20110826

REACTIONS (3)
  - VENTRICULAR INTERNAL DIAMETER ABNORMAL [None]
  - PREMATURE BABY [None]
  - LOW BIRTH WEIGHT BABY [None]
